FAERS Safety Report 9416633 (Version 1)
Quarter: 2013Q3

REPORT INFORMATION
  Report Type: Report from Study
  Country: MX (occurrence: MX)
  Receive Date: 20130724
  Receipt Date: 20130724
  Transmission Date: 20140515
  Serious: Yes (Other)
  Sender: FDA-Public Use
  Company Number: MX-TEVA-420122ISR

PATIENT
  Sex: Male

DRUGS (1)
  1. SIRDALUD [Suspect]
     Indication: PAIN
     Dosage: 6 MILLIGRAM DAILY;
     Route: 048
     Dates: start: 20120503

REACTIONS (2)
  - Abdominal pain [Not Recovered/Not Resolved]
  - Dyspnoea [Not Recovered/Not Resolved]
